FAERS Safety Report 16451850 (Version 1)
Quarter: 2019Q2

REPORT INFORMATION
  Report Type: Spontaneous
  Country: DK (occurrence: DK)
  Receive Date: 20190619
  Receipt Date: 20190619
  Transmission Date: 20190711
  Serious: Yes (Hospitalization)
  Sender: FDA-Public Use
  Company Number: DK-MYLANLABS-2019M1056183

PATIENT
  Age: 74 Year
  Sex: Female

DRUGS (19)
  1. ALENDRONATE [Suspect]
     Active Substance: ALENDRONATE SODIUM
     Indication: MUSCULOSKELETAL DISORDER
     Dosage: UNK
     Route: 048
     Dates: start: 20161215, end: 20161222
  2. OMEPRAZOLE. [Concomitant]
     Active Substance: OMEPRAZOLE
     Indication: GASTROOESOPHAGEAL REFLUX DISEASE
     Dosage: STYRKE: 20 MG.
     Route: 048
     Dates: start: 20160912
  3. CARVEDILOL. [Concomitant]
     Active Substance: CARVEDILOL
     Indication: CARDIAC DISORDER
     Dosage: STYRKE: 25 MG.
     Route: 048
     Dates: start: 20150717
  4. GABAPENTIN. [Concomitant]
     Active Substance: GABAPENTIN
     Indication: NEURALGIA
     Dosage: STYRKE: 300 MG.
     Route: 048
     Dates: start: 20160922
  5. DOMPERIDONE [Concomitant]
     Active Substance: DOMPERIDONE
     Indication: NAUSEA
     Dosage: STYRKE: 10 MG. DOSIS: 1 TABLET PN. H?JST 3 GANGE DAGLIGT.
     Route: 048
     Dates: start: 20161210
  6. XGEVA [Suspect]
     Active Substance: DENOSUMAB
     Indication: BREAST CANCER METASTATIC
     Dosage: STYRKE: 120 MG.
     Route: 058
     Dates: start: 20150924, end: 20151116
  7. ZOMETA [Suspect]
     Active Substance: ZOLEDRONIC ACID
     Indication: PRODUCT USED FOR UNKNOWN INDICATION
     Dosage: STYRKE: UKENDT.
     Route: 042
     Dates: start: 20150427, end: 20150924
  8. EXEMESTANE. [Concomitant]
     Active Substance: EXEMESTANE
     Indication: BREAST CANCER
     Dosage: STYRKE: 25 MG.
     Route: 048
     Dates: start: 20170213
  9. MACROGOL [Concomitant]
     Active Substance: POLYETHYLENE GLYCOLS
     Indication: CONSTIPATION
     Dosage: STYRKE: UKENDT. DOSIS: 1 BREV PN. H?JST 2 GANGE DAGLIGT.
     Route: 048
     Dates: start: 20160920
  10. ZUCLOPENTHIXOL [Concomitant]
     Active Substance: ZUCLOPENTHIXOL
     Indication: MENTAL DISORDER
     Dosage: STYRKE: 2 MG. DOSIS: 2 TABLETTER MORGEN, 3 TABLETTER NAT.
     Route: 048
     Dates: start: 20141001
  11. RAMIPRIL. [Concomitant]
     Active Substance: RAMIPRIL
     Indication: CARDIAC FAILURE
     Dosage: STYRKE: 2,5 MG.
     Route: 048
     Dates: start: 20150706
  12. IBUPROFEN. [Concomitant]
     Active Substance: IBUPROFEN
     Indication: PAIN
     Dosage: STYRKE: 400 MG. DOSIS: 1 TABLET PN., H?JST 4 GANGE DAGLIGT.
     Route: 048
     Dates: start: 20180826, end: 20180920
  13. FENTANYL. [Concomitant]
     Active Substance: FENTANYL
     Indication: PAIN
     Dosage: STYRKE: 25 MIKROGRAM/DOSIS + 100 MIKROGRAM/DOSIS.
     Route: 062
     Dates: start: 20160711
  14. MELATONIN [Concomitant]
     Active Substance: MELATONIN
     Indication: INSOMNIA
     Dosage: STYRKE: 3 MG.
     Route: 048
     Dates: start: 20171026, end: 20180310
  15. QUETIAPINE. [Concomitant]
     Active Substance: QUETIAPINE
     Indication: SCHIZOPHRENIA
     Dosage: STRKE: 25 MG.
     Route: 048
     Dates: start: 20160424
  16. QUININE [Concomitant]
     Active Substance: QUININE
     Indication: MUSCLE SPASMS
     Dosage: STYRKE: 100 MG.
     Route: 048
     Dates: start: 20160123, end: 20180920
  17. BONDRONAT                          /01304702/ [Suspect]
     Active Substance: IBANDRONATE SODIUM
     Indication: MUSCULOSKELETAL DISORDER
     Dosage: STYRKE: 50 MG.
     Route: 048
     Dates: start: 20160222, end: 20180618
  18. PARACETAMOL [Concomitant]
     Active Substance: ACETAMINOPHEN
     Indication: PAIN
     Dosage: STYRKE: 665 MG.
     Route: 048
     Dates: start: 20160920
  19. CALCIUM + VIT D [Concomitant]
     Active Substance: CALCIUM\VITAMIN D
     Indication: VITAMIN SUPPLEMENTATION
     Dosage: STYRKE: UKENDT.
     Route: 048
     Dates: start: 20160608

REACTIONS (5)
  - Oral cavity fistula [Recovered/Resolved]
  - Pain in jaw [Recovered/Resolved]
  - Osteonecrosis of jaw [Recovered/Resolved]
  - Exostosis of jaw [Recovered/Resolved]
  - Exposed bone in jaw [Recovered/Resolved]

NARRATIVE: CASE EVENT DATE: 2018
